FAERS Safety Report 17441412 (Version 1)
Quarter: 2020Q1

REPORT INFORMATION
  Report Type: Other
  Country: IT (occurrence: IT)
  Receive Date: 20200220
  Receipt Date: 20200220
  Transmission Date: 20200409
  Serious: Yes (Hospitalization)
  Sender: FDA-Public Use
  Company Number: IT-DENTSPLY-2020SCDP000066

PATIENT
  Age: 92 Year
  Sex: Female

DRUGS (1)
  1. MEPIVACAINE [Suspect]
     Active Substance: MEPIVACAINE HYDROCHLORIDE
     Indication: LOCAL ANAESTHESIA
     Dosage: 1 DOSAGE FORM, TOTAL
     Route: 058
     Dates: start: 20200122, end: 20200122

REACTIONS (1)
  - Vomiting [None]

NARRATIVE: CASE EVENT DATE: 20200122
